FAERS Safety Report 24816099 (Version 1)
Quarter: 2025Q1

REPORT INFORMATION
  Report Type: Report from Study
  Country: CA (occurrence: CA)
  Receive Date: 20250107
  Receipt Date: 20250107
  Transmission Date: 20250408
  Serious: Yes (Hospitalization, Other)
  Sender: DAIICHI
  Company Number: CA-AstraZeneca-CH-00764593A

PATIENT
  Sex: Female

DRUGS (1)
  1. ENHERTU [Suspect]
     Active Substance: FAM-TRASTUZUMAB DERUXTECAN-NXKI
     Indication: Breast cancer metastatic
     Dosage: 360.18 MG, ONCE EVERY 3 WK
     Route: 042
     Dates: start: 20230406

REACTIONS (3)
  - Perineal cellulitis [Unknown]
  - Malaise [Unknown]
  - Inappropriate schedule of product administration [Unknown]
